FAERS Safety Report 22366993 (Version 1)
Quarter: 2023Q2

REPORT INFORMATION
  Report Type: Spontaneous
  Country: US (occurrence: None)
  Receive Date: 20230524
  Receipt Date: 20230524
  Transmission Date: 20230722
  Serious: Yes (Hospitalization)
  Sender: FDA-Public Use
  Company Number: None

PATIENT
  Age: 45 Year
  Sex: Female

DRUGS (1)
  1. STELARA [Suspect]
     Active Substance: USTEKINUMAB
     Indication: Crohn^s disease
     Dosage: FREQUENCY : MONTHLY;?
     Route: 058
     Dates: start: 20220113

REACTIONS (4)
  - Crohn^s disease [None]
  - Abdominal pain [None]
  - Vomiting [None]
  - Unevaluable event [None]

NARRATIVE: CASE EVENT DATE: 20230515
